FAERS Safety Report 11197176 (Version 5)
Quarter: 2021Q3

REPORT INFORMATION
  Report Type: Spontaneous
  Country: US (occurrence: US)
  Receive Date: 20150617
  Receipt Date: 20210826
  Transmission Date: 20211014
  Serious: No
  Sender: FDA-Public Use
  Company Number: US-SA-2014SA087746

PATIENT
  Age: 29 Year
  Sex: Female
  Weight: 52.6 kg

DRUGS (3)
  1. CEREZYME [Suspect]
     Active Substance: IMIGLUCERASE
     Indication: GAUCHER^S DISEASE
     Dosage: 2400 U, Q3W
     Route: 042
     Dates: start: 20150513
  2. CEREZYME [Suspect]
     Active Substance: IMIGLUCERASE
     Dosage: 1600 IU, QOW
     Route: 042
     Dates: start: 202104
  3. CEREZYME [Suspect]
     Active Substance: IMIGLUCERASE
     Indication: FABRY^S DISEASE
     Dosage: 45.62 DF,QOW
     Route: 042

REACTIONS (10)
  - Product use in unapproved indication [Unknown]
  - Hypotension [Not Recovered/Not Resolved]
  - Product dose omission issue [Unknown]
  - Neuralgia [Not Recovered/Not Resolved]
  - Malaise [Not Recovered/Not Resolved]
  - Antinuclear antibody positive [Not Recovered/Not Resolved]
  - Inappropriate schedule of product administration [Unknown]
  - Nerve compression [Not Recovered/Not Resolved]
  - Fatigue [Not Recovered/Not Resolved]
  - Product dose omission in error [Unknown]
